FAERS Safety Report 6240261-X (Version None)
Quarter: 2009Q2

REPORT INFORMATION
  Report Type: 
  Country: None (occurrence: None)
  Receive Date: 20090623
  Receipt Date: 20080516
  Transmission Date: 20091009
  Serious: No
  Sender: FDA-Public Use
  Company Number: US-ASTRAZENECA-2008UW10216

PATIENT
  Age: 15 Month
  Sex: Female

DRUGS (2)
  1. PULMICORT RESPULES [Suspect]
     Indication: RESPIRATORY SYNCYTIAL VIRUS INFECTION
     Route: 055
     Dates: start: 20080101
  2. XOPENEX [Suspect]

REACTIONS (2)
  - AMBLYOPIA [None]
  - MEDICATION ERROR [None]
